FAERS Safety Report 5732647-4 (Version None)
Quarter: 2008Q2

REPORT INFORMATION
  Report Type: 
  Country: None (occurrence: None)
  Receive Date: 20080507
  Receipt Date: 20080424
  Transmission Date: 20081010
  Serious: Yes (Hospitalization, Other)
  Sender: FDA-Public Use
  Company Number: 2008EN000058

PATIENT
  Age: 3 Year
  Sex: Female
  Weight: 16.8 kg

DRUGS (7)
  1. ONCASPAR [Suspect]
     Indication: ACUTE LYMPHOCYTIC LEUKAEMIA
     Dosage: 1600 IU; IM; 1675 IU; IM; 1625 IU; IM
     Route: 030
     Dates: start: 20070116, end: 20070116
  2. ONCASPAR [Suspect]
     Indication: ACUTE LYMPHOCYTIC LEUKAEMIA
     Dosage: 1600 IU; IM; 1675 IU; IM; 1625 IU; IM
     Route: 030
     Dates: start: 20070309, end: 20070309
  3. ONCASPAR [Suspect]
     Indication: ACUTE LYMPHOCYTIC LEUKAEMIA
     Dosage: 1600 IU; IM; 1675 IU; IM; 1625 IU; IM
     Route: 030
     Dates: start: 20070413, end: 20070413
  4. VINCRISTINE [Suspect]
     Indication: ACUTE LYMPHOCYTIC LEUKAEMIA
     Dosage: 1 MG; IV
     Route: 042
  5. METHOTREXATE [Suspect]
     Indication: ACUTE LYMPHOCYTIC LEUKAEMIA
     Dosage: 12 MG; INTH
     Route: 037
  6. TYLENOL [Concomitant]
  7. BENADRYL ^WANER-LAMBERT^ [Concomitant]

REACTIONS (5)
  - DRUG EFFECT DECREASED [None]
  - HAEMOGLOBIN DECREASED [None]
  - HYPERSENSITIVITY [None]
  - PLATELET COUNT DECREASED [None]
  - WHITE BLOOD CELL COUNT DECREASED [None]
